FAERS Safety Report 18607073 (Version 4)
Quarter: 2023Q1

REPORT INFORMATION
  Report Type: Report from Study
  Country: US (occurrence: US)
  Receive Date: 20201211
  Receipt Date: 20230210
  Transmission Date: 20230418
  Serious: Yes (Other)
  Sender: FDA-Public Use
  Company Number: US-SHIRE-US202014363

PATIENT
  Sex: Female

DRUGS (1)
  1. HUMAN IMMUNOGLOBULIN G [Suspect]
     Active Substance: HUMAN IMMUNOGLOBULIN G
     Indication: Primary immunodeficiency syndrome
     Dosage: UNK
     Route: 042

REACTIONS (11)
  - Pulmonary oedema [Unknown]
  - Pulmonary congestion [Unknown]
  - Multiple allergies [Unknown]
  - Headache [Unknown]
  - Sputum increased [Unknown]
  - Sputum discoloured [Unknown]
  - Influenza [Unknown]
  - Sinusitis [Unknown]
  - Oropharyngeal pain [Unknown]
  - Pyrexia [Unknown]
  - Drug ineffective [Unknown]
